FAERS Safety Report 14832896 (Version 1)
Quarter: 2018Q2

REPORT INFORMATION
  Report Type: Spontaneous
  Country: US (occurrence: US)
  Receive Date: 20180501
  Receipt Date: 20180501
  Transmission Date: 20180711
  Serious: Yes (Death)
  Sender: FDA-Public Use
  Company Number: US-LPDUSPRD-20180687

PATIENT
  Age: 68 Year
  Sex: Male
  Weight: 77.2 kg

DRUGS (2)
  1. MIRCERA [Suspect]
     Active Substance: METHOXY POLYETHYLENE GLYCOL-EPOETIN BETA
     Dosage: 75 MCG, 1 IN 2 WK
     Route: 040
     Dates: start: 20180323
  2. VENOFER [Suspect]
     Active Substance: IRON SUCROSE
     Dosage: 100 MG, 3 IN 1 WK
     Route: 040
     Dates: start: 20180323

REACTIONS (2)
  - Unresponsive to stimuli [Unknown]
  - Death [Fatal]

NARRATIVE: CASE EVENT DATE: 20180406
